FAERS Safety Report 9753259 (Version 2)
Quarter: 2013Q4

REPORT INFORMATION
  Report Type: Spontaneous
  Country: US (occurrence: US)
  Receive Date: 20131213
  Receipt Date: 20131213
  Transmission Date: 20140711
  Serious: No
  Sender: FDA-Public Use
  Company Number: US-GILEAD-2010-0026835

PATIENT
  Sex: Female
  Weight: 77.11 kg

DRUGS (6)
  1. LETAIRIS [Suspect]
     Indication: PULMONARY ARTERIAL HYPERTENSION
     Route: 048
     Dates: start: 20091111
  2. OXYGEN [Concomitant]
  3. ASPIRIN [Concomitant]
  4. PREDNISONE [Concomitant]
  5. AMBIEN [Concomitant]
  6. CALCIUM +D [Concomitant]

REACTIONS (2)
  - Hypoxia [Unknown]
  - Herpes zoster [Unknown]
